FAERS Safety Report 7467126-X (Version None)
Quarter: 2011Q2

REPORT INFORMATION
  Report Type: 
  Country: None (occurrence: None)
  Receive Date: 20110509
  Receipt Date: 20101104
  Transmission Date: 20111010
  Serious: No
  Sender: FDA-Public Use
  Company Number: US-ALEXION-A201001422

PATIENT
  Sex: Female

DRUGS (1)
  1. SOLIRIS [Suspect]
     Indication: PAROXYSMAL NOCTURNAL HAEMOGLOBINURIA
     Dosage: 900 MG, Q2W
     Route: 042

REACTIONS (7)
  - PRURITUS [None]
  - VISION BLURRED [None]
  - FEELING HOT [None]
  - PALPITATIONS [None]
  - PAIN IN EXTREMITY [None]
  - VASCULITIS [None]
  - LOCALISED OEDEMA [None]
